FAERS Safety Report 17118124 (Version 1)
Quarter: 2019Q4

REPORT INFORMATION
  Report Type: Spontaneous
  Country: CA (occurrence: CA)
  Receive Date: 20191205
  Receipt Date: 20191205
  Transmission Date: 20200122
  Serious: Yes (Other)
  Sender: FDA-Public Use
  Company Number: CA-NOVOPROD-699739

PATIENT
  Age: 57 Year
  Sex: Female
  Weight: 87 kg

DRUGS (4)
  1. SAXENDA [Suspect]
     Active Substance: LIRAGLUTIDE
     Indication: OBESITY
     Dosage: QD
     Route: 058
  2. BISOPROLOL [Concomitant]
     Active Substance: BISOPROLOL
  3. VENLAFAXINE HYDROCHLORIDE. [Concomitant]
     Active Substance: VENLAFAXINE HYDROCHLORIDE
  4. EZETIMIBE. [Concomitant]
     Active Substance: EZETIMIBE

REACTIONS (6)
  - Retching [Recovered/Resolved]
  - Dizziness [Recovered/Resolved]
  - Product dose omission [Unknown]
  - Presyncope [Recovered/Resolved]
  - Abdominal pain upper [Recovered/Resolved]
  - Hyperhidrosis [Recovered/Resolved]
